FAERS Safety Report 8925770 (Version 3)
Quarter: 2013Q1

REPORT INFORMATION
  Report Type: Spontaneous
  Country: US (occurrence: US)
  Receive Date: 20121126
  Receipt Date: 20130205
  Transmission Date: 20140127
  Serious: Yes (Hospitalization)
  Sender: FDA-Public Use
  Company Number: US-GILEAD-2012-0065052

PATIENT
  Sex: Female

DRUGS (13)
  1. LETAIRIS [Suspect]
     Indication: PULMONARY HYPERTENSION
     Dosage: 5 MG, QD
     Route: 048
     Dates: start: 20121002, end: 20121015
  2. ADCIRCA [Concomitant]
  3. EPOPROSTENOL [Concomitant]
  4. GABAPENTIN [Concomitant]
  5. TRAMADOL [Concomitant]
  6. TORSEMIDE [Concomitant]
  7. SPIRONOLACTONE [Concomitant]
  8. OMEPRAZOLE [Concomitant]
  9. ADVAIR [Concomitant]
  10. CELEBREX [Concomitant]
  11. ALLOPURINOL [Concomitant]
  12. JANUVIA [Concomitant]
  13. COMBIVENT [Concomitant]

REACTIONS (3)
  - Hip fracture [Unknown]
  - Hip arthroplasty [Unknown]
  - Blood pressure abnormal [Unknown]
